FAERS Safety Report 19508932 (Version 10)
Quarter: 2024Q2

REPORT INFORMATION
  Report Type: Spontaneous
  Country: CA (occurrence: CA)
  Receive Date: 20210709
  Receipt Date: 20240422
  Transmission Date: 20240715
  Serious: Yes (Other)
  Sender: FDA-Public Use
  Company Number: CA-CELLTRION INC.-2019CA019110

PATIENT

DRUGS (42)
  1. INFLECTRA [Suspect]
     Active Substance: INFLIXIMAB-DYYB
     Indication: Colitis ulcerative
     Dosage: 350 MG, WEEK 0, 1, 4, THEN EVERY 8 WEEKS- HOSPITAL START
     Route: 042
     Dates: start: 20190208
  2. INFLECTRA [Suspect]
     Active Substance: INFLIXIMAB-DYYB
     Dosage: 350 MG, WEEK 0, 1, 4, THEN EVERY 8 WEEKS
     Route: 042
     Dates: start: 20190214
  3. INFLECTRA [Suspect]
     Active Substance: INFLIXIMAB-DYYB
     Dosage: 350 MG, WEEK 0, 1, 4, THEN EVERY 8 WEEKS
     Route: 042
     Dates: start: 20190305, end: 20190305
  4. INFLECTRA [Suspect]
     Active Substance: INFLIXIMAB-DYYB
     Dosage: 350 MG, WEEK 0, 1, 4, THEN EVERY 8 WEEKS
     Route: 042
     Dates: start: 20190430
  5. INFLECTRA [Suspect]
     Active Substance: INFLIXIMAB-DYYB
     Dosage: 350 MG, WEEK 0, 1, 4, THEN EVERY 8 WEEKS
     Route: 042
     Dates: start: 20190626
  6. INFLECTRA [Suspect]
     Active Substance: INFLIXIMAB-DYYB
     Dosage: 350 MG, WEEK 0, 1, 4, THEN EVERY 8 WEEKS
     Route: 042
     Dates: start: 20190820
  7. INFLECTRA [Suspect]
     Active Substance: INFLIXIMAB-DYYB
     Dosage: 350 MG, WEEK 0, 1, 4, THEN EVERY 8 WEEKS
     Route: 042
     Dates: start: 20190821
  8. INFLECTRA [Suspect]
     Active Substance: INFLIXIMAB-DYYB
     Dosage: 350 MG, WEEK 0, 1, 4, THEN EVERY 8 WEEKS
     Route: 042
     Dates: start: 20191016
  9. INFLECTRA [Suspect]
     Active Substance: INFLIXIMAB-DYYB
     Dosage: 350 MG, WEEK 0, 1, 4, THEN EVERY 8 WEEKS
     Route: 042
     Dates: start: 20200205
  10. INFLECTRA [Suspect]
     Active Substance: INFLIXIMAB-DYYB
     Dosage: 350 MG, WEEK 0, 1, 4, THEN EVERY 8 WEEKS
     Route: 042
     Dates: start: 20200401
  11. INFLECTRA [Suspect]
     Active Substance: INFLIXIMAB-DYYB
     Dosage: 350 MG, WEEK 0, 1, 4, THEN EVERY 8 WEEKS
     Route: 042
     Dates: start: 20200527
  12. INFLECTRA [Suspect]
     Active Substance: INFLIXIMAB-DYYB
     Dosage: 350 MG, WEEK 0, 1, 4, THEN EVERY 8 WEEKS
     Route: 042
     Dates: start: 20200722
  13. INFLECTRA [Suspect]
     Active Substance: INFLIXIMAB-DYYB
     Dosage: 350 MG, WEEK 0, 1, 4, THEN EVERY 8 WEEKS
     Route: 042
     Dates: start: 20200916
  14. INFLECTRA [Suspect]
     Active Substance: INFLIXIMAB-DYYB
     Dosage: 350 MG, WEEK 0, 1, 4, THEN EVERY 8 WEEKS
     Route: 042
     Dates: start: 20201111
  15. INFLECTRA [Suspect]
     Active Substance: INFLIXIMAB-DYYB
     Dosage: 350 MG, WEEK 0, 1, 4, THEN EVERY 8 WEEKS
     Route: 042
     Dates: start: 20210106
  16. INFLECTRA [Suspect]
     Active Substance: INFLIXIMAB-DYYB
     Dosage: 350 MG, WEEK 0, 1, 4, THEN EVERY 8 WEEKS
     Route: 042
     Dates: start: 20210106
  17. INFLECTRA [Suspect]
     Active Substance: INFLIXIMAB-DYYB
     Dosage: 350 MG, WEEK 0, 1, 4, THEN EVERY 8 WEEKS
     Route: 042
     Dates: start: 20210303
  18. INFLECTRA [Suspect]
     Active Substance: INFLIXIMAB-DYYB
     Dosage: 350 MG, WEEK 0, 1, 4, THEN EVERY 8 WEEKS
     Route: 042
     Dates: start: 20210429
  19. INFLECTRA [Suspect]
     Active Substance: INFLIXIMAB-DYYB
     Dosage: 350 MG, WEEK 0, 1, 4, THEN EVERY 8 WEEKS
     Route: 042
     Dates: start: 20210628
  20. INFLECTRA [Suspect]
     Active Substance: INFLIXIMAB-DYYB
     Dosage: 350 MG, WEEK 0, 1, 4, THEN EVERY 8 WEEKS
     Route: 042
     Dates: start: 20210818
  21. INFLECTRA [Suspect]
     Active Substance: INFLIXIMAB-DYYB
     Dosage: 350 MG, WEEK 0, 1, 4, THEN EVERY 8 WEEKS
     Route: 042
     Dates: start: 20211013
  22. INFLECTRA [Suspect]
     Active Substance: INFLIXIMAB-DYYB
     Dosage: 350 MG, WEEK 0, 1, 4, THEN EVERY 8 WEEKS
     Route: 042
     Dates: start: 20220202
  23. INFLECTRA [Suspect]
     Active Substance: INFLIXIMAB-DYYB
     Dosage: 350 MG, WEEK 0, 1, 4, THEN EVERY 8 WEEKS
     Route: 042
     Dates: start: 20220330
  24. INFLECTRA [Suspect]
     Active Substance: INFLIXIMAB-DYYB
     Dosage: 350 MG, WEEK 0, 1, 4, THEN EVERY 8 WEEKS
     Route: 042
     Dates: start: 20220525
  25. INFLECTRA [Suspect]
     Active Substance: INFLIXIMAB-DYYB
     Dosage: 350 MG, WEEK 0, 1, 4, THEN EVERY 8 WEEKS
     Route: 042
     Dates: start: 20220720, end: 20220720
  26. INFLECTRA [Suspect]
     Active Substance: INFLIXIMAB-DYYB
     Dosage: 350 MG, WEEK 0, 1, 4, THEN EVERY 8 WEEKS
     Route: 042
     Dates: start: 20221109, end: 20221109
  27. INFLECTRA [Suspect]
     Active Substance: INFLIXIMAB-DYYB
     Dosage: 350 MG, WEEK 0, 1, 4, THEN EVERY 8 WEEKS
     Route: 042
     Dates: start: 20230301
  28. INFLECTRA [Suspect]
     Active Substance: INFLIXIMAB-DYYB
     Dosage: 400 MG, EVERY 8 WEEKS
     Route: 042
     Dates: start: 20230426
  29. INFLECTRA [Suspect]
     Active Substance: INFLIXIMAB-DYYB
     Dosage: 400 MG, EVERY 8 WEEKS
     Route: 042
     Dates: start: 20230621
  30. INFLECTRA [Suspect]
     Active Substance: INFLIXIMAB-DYYB
     Dosage: 400 MG, EVERY 8 WEEKS
     Route: 042
     Dates: start: 20230816
  31. INFLECTRA [Suspect]
     Active Substance: INFLIXIMAB-DYYB
     Dosage: 400 MG, EVERY 8 WEEKS
     Route: 042
     Dates: start: 20231011
  32. INFLECTRA [Suspect]
     Active Substance: INFLIXIMAB-DYYB
     Dosage: 400 MG, EVERY 8 WEEKS
     Route: 042
     Dates: start: 20231206
  33. INFLECTRA [Suspect]
     Active Substance: INFLIXIMAB-DYYB
     Dosage: 400 MG, EVERY 8 WEEKS
     Route: 042
     Dates: start: 20240104
  34. INFLECTRA [Suspect]
     Active Substance: INFLIXIMAB-DYYB
     Dosage: 400 MG, AFTER 4 WEEKS (PRESCRIBED EVERY 8 WEEKS)
     Route: 042
     Dates: start: 20240131
  35. INFLECTRA [Suspect]
     Active Substance: INFLIXIMAB-DYYB
     Dosage: 400 MG, EVERY 8 WEEKS
     Route: 042
     Dates: start: 20240327
  36. SULFAMETHOXAZOLE\TRIMETHOPRIM [Concomitant]
     Active Substance: SULFAMETHOXAZOLE\TRIMETHOPRIM
     Dosage: 1 DF, DOSAGE INFORMATION NOT AVAILABLE
     Route: 065
     Dates: start: 20190212
  37. JAMP-CALCIUM + VITAMIN D [Concomitant]
     Dosage: 1 DF, DOSAGE INFORMATION NOT AVAILABLE
     Route: 065
     Dates: start: 20190212
  38. FOLIC ACID [Concomitant]
     Active Substance: FOLIC ACID
     Dosage: 1 DF, DOSAGE INFORMATION NOT AVAILABLE
     Route: 065
     Dates: start: 20190212
  39. METHOTREXATE [Concomitant]
     Active Substance: METHOTREXATE
     Dosage: 12.5 MG, WEEKLY (1DF)
     Route: 065
     Dates: start: 20190212
  40. PMS RISEDRONATE [Concomitant]
     Dosage: 1 DF, DOSAGE INFORMATION NOT AVAILABLE
     Route: 065
     Dates: start: 20190212
  41. PREDNISONE [Concomitant]
     Active Substance: PREDNISONE
     Dosage: 1 DF
     Route: 065
     Dates: start: 20190212
  42. PREDNISONE [Concomitant]
     Active Substance: PREDNISONE
     Dosage: 1 DF, DOSAGE INFORMATION NOT AVAILABLE, DECREASING DOSE
     Route: 065
     Dates: start: 201902

REACTIONS (22)
  - Blood pressure increased [Not Recovered/Not Resolved]
  - Nervousness [Not Recovered/Not Resolved]
  - Pain in extremity [Not Recovered/Not Resolved]
  - Arthropathy [Not Recovered/Not Resolved]
  - Nerve compression [Not Recovered/Not Resolved]
  - Intervertebral disc injury [Not Recovered/Not Resolved]
  - Osteoarthritis [Not Recovered/Not Resolved]
  - Condition aggravated [Recovered/Resolved]
  - Weight decreased [Unknown]
  - Weight increased [Not Recovered/Not Resolved]
  - Foreign body in eye [Unknown]
  - Visual impairment [Not Recovered/Not Resolved]
  - Nervousness [Unknown]
  - Blood pressure increased [Not Recovered/Not Resolved]
  - Anxiety [Not Recovered/Not Resolved]
  - Stress [Unknown]
  - Arthralgia [Not Recovered/Not Resolved]
  - Back pain [Not Recovered/Not Resolved]
  - Constipation [Not Recovered/Not Resolved]
  - Off label use [Unknown]
  - Off label use [Unknown]
  - Intentional product use issue [Unknown]

NARRATIVE: CASE EVENT DATE: 20190208
